FAERS Safety Report 7592381-5 (Version None)
Quarter: 2011Q3

REPORT INFORMATION
  Report Type: 
  Country: None (occurrence: None)
  Receive Date: 20110706
  Receipt Date: 20110622
  Transmission Date: 20111222
  Serious: Yes (Hospitalization)
  Sender: FDA-Public Use
  Company Number: JP-BAYER-201010173BYL

PATIENT
  Age: 76 Year
  Sex: Male

DRUGS (4)
  1. NEXAVAR [Suspect]
     Indication: HEPATIC NEOPLASM MALIGNANT
     Dosage: 400 MG, QD
     Dates: start: 20090701
  2. NEXAVAR [Suspect]
     Route: 048
     Dates: start: 20100105, end: 20100111
  3. NEXAVAR [Suspect]
     Route: 048
     Dates: start: 20100510, end: 20100531
  4. NEXAVAR [Suspect]
     Route: 048
     Dates: start: 20100112

REACTIONS (7)
  - DIARRHOEA [None]
  - BRAIN STEM INFARCTION [None]
  - PALMAR-PLANTAR ERYTHRODYSAESTHESIA SYNDROME [None]
  - FLUSHING [None]
  - DEVICE DIFFICULT TO USE [None]
  - HEADACHE [None]
  - STOMATITIS [None]
